FAERS Safety Report 15982366 (Version 1)
Quarter: 2019Q1

REPORT INFORMATION
  Report Type: Spontaneous
  Country: FR (occurrence: FR)
  Receive Date: 20190219
  Receipt Date: 20190219
  Transmission Date: 20190418
  Serious: Yes (Hospitalization)
  Sender: FDA-Public Use
  Company Number: FR-MYLANLABS-2019M1015570

PATIENT
  Age: 88 Year
  Sex: Male
  Weight: 62 kg

DRUGS (4)
  1. BACTRIM [Interacting]
     Active Substance: SULFAMETHOXAZOLE\TRIMETHOPRIM
     Indication: DERMO-HYPODERMITIS
     Dosage: 2 DOSAGE FORM, QD
     Route: 048
     Dates: start: 20180518, end: 20180522
  2. ALLOPURINOL. [Suspect]
     Active Substance: ALLOPURINOL
     Indication: GOUT
     Dosage: 100 MILLIGRAM, QD
     Route: 048
  3. COUMADINE [Interacting]
     Active Substance: WARFARIN SODIUM
     Indication: ATRIAL FIBRILLATION
     Dosage: 2 MILLIGRAM, QD
     Route: 048
     Dates: end: 20180522
  4. PYOSTACINE [Interacting]
     Active Substance: PRISTINAMYCIN
     Indication: DERMO-HYPODERMITIS
     Dosage: 3 GRAM, QD
     Route: 048
     Dates: start: 20180518, end: 20180522

REACTIONS (2)
  - Drug interaction [Unknown]
  - Haematuria [Recovered/Resolved]

NARRATIVE: CASE EVENT DATE: 20180522
